FAERS Safety Report 4573073-3 (Version None)
Quarter: 2005Q1

REPORT INFORMATION
  Report Type: 
  Country: None (occurrence: None)
  Receive Date: 20050204
  Receipt Date: 20050124
  Transmission Date: 20050727
  Serious: Yes (Hospitalization)
  Sender: FDA-Public Use
  Company Number: OMPQ-NO-0501S-0205

PATIENT
  Age: 76 Year
  Sex: Male
  Weight: 164 kg

DRUGS (6)
  1. OMNIPAQUE 140 [Suspect]
     Indication: HEPATIC NEOPLASM
     Dosage: 100 ML, SINGLE DOSE, I.V.
     Route: 042
     Dates: start: 20041213, end: 20041213
  2. THEO-DUR [Concomitant]
  3. LASIX [Concomitant]
  4. SPIRONOLACTONE [Concomitant]
  5. BIOFERMIN (LACTOBACILLUS ACIDOPHILLUS, [Concomitant]
  6. FAMOTIDINE       (GASTER D) [Concomitant]

REACTIONS (3)
  - ERYTHEMA [None]
  - PLATELET COUNT DECREASED [None]
  - PRURITUS [None]
